FAERS Safety Report 4535746-8 (Version None)
Quarter: 2004Q4

REPORT INFORMATION
  Report Type: 
  Country: None (occurrence: None)
  Receive Date: 20041223
  Receipt Date: 20040203
  Transmission Date: 20050328
  Serious: No
  Sender: FDA-Public Use
  Company Number: US-GLAXOSMITHKLINE-A0496306A

PATIENT
  Age: 34 Year
  Sex: Male

DRUGS (2)
  1. FLONASE [Suspect]
     Indication: NASAL CONGESTION
     Dosage: 2SPR PER DAY
     Route: 045
     Dates: start: 20040130, end: 20040130
  2. ANTIBIOTIC [Concomitant]

REACTIONS (2)
  - EPISTAXIS [None]
  - VOMITING [None]
